FAERS Safety Report 4661250-2 (Version None)
Quarter: 2005Q2

REPORT INFORMATION
  Report Type: 
  Country: None (occurrence: None)
  Receive Date: 20050429
  Receipt Date: 20050303
  Transmission Date: 20051028
  Serious: Yes (Hospitalization)
  Sender: FDA-Public Use
  Company Number: 2005039961

PATIENT
  Age: 4 Year
  Sex: Male

DRUGS (1)
  1. BENADRYL [Suspect]
     Indication: ACCIDENTAL OVERDOSE
     Dosage: 1/2 (8 OZ) BOTTLE ONCE,ORAL
     Route: 048
     Dates: start: 20050303, end: 20050303

REACTIONS (2)
  - ACCIDENTAL OVERDOSE [None]
  - NO ADVERSE DRUG EFFECT [None]
